FAERS Safety Report 14660052 (Version 1)
Quarter: 2018Q1

REPORT INFORMATION
  Report Type: Spontaneous
  Country: US (occurrence: US)
  Receive Date: 20180320
  Receipt Date: 20180320
  Transmission Date: 20180509
  Serious: Yes (Hospitalization)
  Sender: FDA-Public Use
  Company Number: US-TARO PHARMACEUTICALS USA.,INC-2018SUN00120

PATIENT
  Age: 59 Year
  Sex: Male

DRUGS (1)
  1. ACETAMINOPHEN. [Suspect]
     Active Substance: ACETAMINOPHEN
     Indication: PAIN
     Dosage: 5200 MG, DAILY
     Route: 065

REACTIONS (4)
  - Overdose [Unknown]
  - Fatigue [Unknown]
  - Jaundice [Not Recovered/Not Resolved]
  - Drug-induced liver injury [Not Recovered/Not Resolved]
